FAERS Safety Report 8502299-9 (Version None)
Quarter: 2012Q3

REPORT INFORMATION
  Report Type: 
  Country: None (occurrence: None)
  Receive Date: 20120711
  Receipt Date: 20111121
  Transmission Date: 20120928
  Serious: Yes (Death)
  Sender: FDA-Public Use
  Company Number: US-COVIDIEN/TYCO HEALTHCARE/MALLINCKRODT-T201102711

PATIENT
  Age: 30 Year
  Sex: Male

DRUGS (3)
  1. METHADOSE [Suspect]
  2. MORPHINE [Suspect]
  3. OXYCODONE HCL [Suspect]

REACTIONS (1)
  - MULTIPLE DRUG OVERDOSE [None]
